FAERS Safety Report 15091378 (Version 1)
Quarter: 2018Q2

REPORT INFORMATION
  Report Type: Spontaneous
  Country: US (occurrence: US)
  Receive Date: 20180629
  Receipt Date: 20180629
  Transmission Date: 20180711
  Serious: No
  Sender: FDA-Public Use
  Company Number: US-AMGEN-USASP2016157189

PATIENT
  Sex: Female

DRUGS (1)
  1. PROLIA [Suspect]
     Active Substance: DENOSUMAB
     Indication: OSTEOPOROSIS POSTMENOPAUSAL
     Dosage: UNK, UNK
     Route: 065
     Dates: start: 2014

REACTIONS (6)
  - Feeling abnormal [Unknown]
  - Back pain [Not Recovered/Not Resolved]
  - Joint noise [Unknown]
  - Bone pain [Unknown]
  - Pain in extremity [Not Recovered/Not Resolved]
  - Head discomfort [Unknown]
